FAERS Safety Report 14393418 (Version 1)
Quarter: 2018Q1

REPORT INFORMATION
  Report Type: Spontaneous
  Country: GB (occurrence: GB)
  Receive Date: 20180116
  Receipt Date: 20180116
  Transmission Date: 20180509
  Serious: Yes (Other)
  Sender: FDA-Public Use
  Company Number: GB-TEVA-2018-GB-844618

PATIENT
  Age: 52 Year
  Sex: Male

DRUGS (2)
  1. FENTANYL. [Suspect]
     Active Substance: FENTANYL
     Indication: OESOPHAGOGASTROSTOMY
     Dates: start: 20170621, end: 20170621
  2. TEICOPLANIN [Suspect]
     Active Substance: TEICOPLANIN
     Indication: OESOPHAGOGASTROSTOMY
     Dates: start: 20170621, end: 20170621

REACTIONS (3)
  - Nausea [Recovered/Resolved]
  - Cardiac arrest [Recovered/Resolved]
  - Hypersensitivity [Unknown]

NARRATIVE: CASE EVENT DATE: 20170621
